FAERS Safety Report 21282948 (Version 2)
Quarter: 2022Q4

REPORT INFORMATION
  Report Type: Spontaneous
  Country: JP (occurrence: JP)
  Receive Date: 20220901
  Receipt Date: 20221006
  Transmission Date: 20230113
  Serious: Yes (Other)
  Sender: FDA-Public Use
  Company Number: JP-DSJP-DSJ-2022-131397AA

PATIENT
  Age: 88 Year
  Sex: Female
  Weight: 65 kg

DRUGS (8)
  1. EDOXABAN TOSYLATE [Suspect]
     Active Substance: EDOXABAN TOSYLATE
     Indication: Pulmonary embolism
     Dosage: 60 MG, QD
     Route: 050
     Dates: start: 20220728, end: 20220803
  2. EDOXABAN TOSYLATE [Suspect]
     Active Substance: EDOXABAN TOSYLATE
     Dosage: 30 MG, QD
     Route: 050
     Dates: start: 20220804, end: 20220806
  3. FUROSEMIDE [Concomitant]
     Active Substance: FUROSEMIDE
     Indication: Oedema
     Dosage: 10 MG, QD
     Route: 050
     Dates: start: 20220622, end: 20220806
  4. LANSOPRAZOLE [Suspect]
     Active Substance: LANSOPRAZOLE
     Indication: Gastric ulcer
     Dosage: 15 MG, QD
     Route: 050
     Dates: start: 20220701, end: 20220808
  5. POLAPREZINC [Concomitant]
     Active Substance: POLAPREZINC
     Indication: Gastric ulcer
     Dosage: 150 MG, BID
     Route: 050
     Dates: start: 20220630
  6. SODIUM PICOSULFATE [Concomitant]
     Active Substance: SODIUM PICOSULFATE
     Indication: Constipation
     Dosage: 10 ML, QD
     Route: 050
     Dates: start: 20220729
  7. HERBALS [Suspect]
     Active Substance: HERBALS
     Indication: Oedema
     Dosage: 2.5 G, QD
     Route: 050
     Dates: start: 20220628, end: 20220808
  8. SODIUM CHLORIDE [Concomitant]
     Active Substance: SODIUM CHLORIDE
     Indication: Hyponatraemia
     Dosage: 3 G, QD
     Route: 050
     Dates: start: 20220728

REACTIONS (1)
  - Erythema multiforme [Recovering/Resolving]

NARRATIVE: CASE EVENT DATE: 20220804
